FAERS Safety Report 6338434-0 (Version None)
Quarter: 2009Q3

REPORT INFORMATION
  Report Type: 
  Country: None (occurrence: None)
  Receive Date: 20090901
  Receipt Date: 20090817
  Transmission Date: 20100115
  Serious: Yes (Death, Hospitalization)
  Sender: FDA-Public Use
  Company Number: 2009AL002153

PATIENT
  Age: 69 Year
  Sex: Female

DRUGS (13)
  1. DIGOXIN [Suspect]
     Dosage: 0.125MG, DAILY, PO
     Route: 048
  2. ASPIRIN [Concomitant]
  3. ALBUTEROL [Concomitant]
  4. ADVAIR HFA [Concomitant]
  5. LASIX [Concomitant]
  6. CYCLOSPORINE [Concomitant]
  7. LORTAB [Concomitant]
  8. RESTORIL [Concomitant]
  9. COREG [Concomitant]
  10. SYNTHROID [Concomitant]
  11. MEDROL [Concomitant]
  12. ATIVAN [Concomitant]
  13. POTASSIUM CHLORIDE [Concomitant]

REACTIONS (8)
  - CARDIOACTIVE DRUG LEVEL INCREASED [None]
  - COUGH [None]
  - DYSPNOEA [None]
  - ECONOMIC PROBLEM [None]
  - ILL-DEFINED DISORDER [None]
  - INJURY [None]
  - SURGERY [None]
  - WHEEZING [None]
